FAERS Safety Report 5921367-9 (Version None)
Quarter: 2008Q4

REPORT INFORMATION
  Report Type: 
  Country: None (occurrence: None)
  Receive Date: 20081014
  Receipt Date: 20081003
  Transmission Date: 20090506
  Serious: Yes (Hospitalization)
  Sender: FDA-Public Use
  Company Number: 004263

PATIENT
  Age: 71 Year
  Sex: Male
  Weight: 54.1 kg

DRUGS (3)
  1. PLETAL [Suspect]
     Indication: CEREBRAL INFARCTION
     Dates: start: 20060303, end: 20080825
  2. MUCOSTA (REBAMIPIDE) TABLET [Concomitant]
  3. LIPITOR [Concomitant]

REACTIONS (6)
  - ACTIVITIES OF DAILY LIVING IMPAIRED [None]
  - BENIGN PROSTATIC HYPERPLASIA [None]
  - CONDITION AGGRAVATED [None]
  - DYSURIA [None]
  - POLLAKIURIA [None]
  - URINARY RETENTION [None]
